FAERS Safety Report 6910621-X (Version None)
Quarter: 2010Q3

REPORT INFORMATION
  Report Type: 
  Country: None (occurrence: None)
  Receive Date: 20100806
  Receipt Date: 20100803
  Transmission Date: 20110219
  Serious: Yes (Other)
  Sender: FDA-Public Use
  Company Number: BE-BRISTOL-MYERS SQUIBB COMPANY-15225907

PATIENT

DRUGS (1)
  1. APROVEL [Suspect]
     Dates: end: 20100201

REACTIONS (1)
  - FOETAL DISTRESS SYNDROME [None]
